FAERS Safety Report 15945020 (Version 6)
Quarter: 2020Q4

REPORT INFORMATION
  Report Type: Report from Study
  Country: US (occurrence: US)
  Receive Date: 20190211
  Receipt Date: 20201022
  Transmission Date: 20210113
  Serious: Yes (Hospitalization)
  Sender: FDA-Public Use
  Company Number: US-ACADIA PHARMACEUTICALS INC.-ACA-2018-011175

PATIENT
  Age: 71 Year
  Sex: Male

DRUGS (3)
  1. NUPLAZID [Suspect]
     Active Substance: PIMAVANSERIN TARTRATE
     Indication: PARKINSON^S DISEASE
     Dosage: 34 MG, QD AT LUNCHTIME
     Route: 048
     Dates: start: 20191213
  2. NUPLAZID [Suspect]
     Active Substance: PIMAVANSERIN TARTRATE
     Indication: HALLUCINATION
     Dosage: 34 MG, QD AT LUNCHTIME
     Route: 048
     Dates: start: 20181025
  3. NUPLAZID [Suspect]
     Active Substance: PIMAVANSERIN TARTRATE
     Indication: DELUSION
     Dosage: 34 MILLIGRAM QD
     Route: 048
     Dates: start: 20191013

REACTIONS (21)
  - Abnormal behaviour [Not Recovered/Not Resolved]
  - Dysstasia [Not Recovered/Not Resolved]
  - Somnambulism [Not Recovered/Not Resolved]
  - Hallucination, visual [Not Recovered/Not Resolved]
  - Drug ineffective [Unknown]
  - Hip arthroplasty [Not Recovered/Not Resolved]
  - Fall [Unknown]
  - Neoplasm [Not Recovered/Not Resolved]
  - Hallucination [Not Recovered/Not Resolved]
  - Amnesia [Not Recovered/Not Resolved]
  - Movement disorder [Not Recovered/Not Resolved]
  - Hallucination [Not Recovered/Not Resolved]
  - Pain [Not Recovered/Not Resolved]
  - Amnesia [Not Recovered/Not Resolved]
  - Dysphagia [Not Recovered/Not Resolved]
  - Tremor [Not Recovered/Not Resolved]
  - Dry mouth [Not Recovered/Not Resolved]
  - Abnormal dreams [Not Recovered/Not Resolved]
  - Delusion [Not Recovered/Not Resolved]
  - Back pain [Not Recovered/Not Resolved]
  - Somnambulism [Not Recovered/Not Resolved]

NARRATIVE: CASE EVENT DATE: 2018
